FAERS Safety Report 7920711-0 (Version None)
Quarter: 2011Q4

REPORT INFORMATION
  Report Type: 
  Country: None (occurrence: None)
  Receive Date: 20111117
  Receipt Date: 20111107
  Transmission Date: 20120403
  Serious: Yes (Other)
  Sender: FDA-Public Use
  Company Number: US-JNJFOC-20111103060

PATIENT
  Sex: Male
  Weight: 99.79 kg

DRUGS (2)
  1. REMICADE [Suspect]
     Indication: COLITIS ULCERATIVE
     Route: 042
     Dates: start: 20090501
  2. METHOTREXATE [Concomitant]
     Indication: COLITIS ULCERATIVE
     Route: 030
     Dates: start: 20090501

REACTIONS (8)
  - SPINAL COLUMN STENOSIS [None]
  - OEDEMA PERIPHERAL [None]
  - JOINT SWELLING [None]
  - INTERVERTEBRAL DISC PROTRUSION [None]
  - HYPOAESTHESIA [None]
  - ARTHRALGIA [None]
  - ERYTHEMA [None]
  - PAIN IN EXTREMITY [None]
